FAERS Safety Report 24718704 (Version 2)
Quarter: 2024Q4

REPORT INFORMATION
  Report Type: Spontaneous
  Country: US (occurrence: US)
  Receive Date: 20241210
  Receipt Date: 20241225
  Transmission Date: 20250115
  Serious: Yes (Hospitalization)
  Sender: ORGANON
  Company Number: US-ORGANON-O2412USA000375

PATIENT
  Sex: Female

DRUGS (2)
  1. NEXPLANON [Suspect]
     Active Substance: ETONOGESTREL
     Dosage: 1 IMPLANT (68 MG) EVERY THREE YEAR IN  LEFT UPPER EXTREMITY (ARM)
     Route: 059
     Dates: start: 20241119, end: 20241130
  2. NEXPLANON [Concomitant]
     Active Substance: ETONOGESTREL
     Dosage: 1 IMPLANT
     Route: 059
     Dates: start: 202111, end: 20241119

REACTIONS (3)
  - Implant site cellulitis [Not Recovered/Not Resolved]
  - White blood cell disorder [Recovering/Resolving]
  - Complication associated with device [Recovered/Resolved]

NARRATIVE: CASE EVENT DATE: 20240101
